FAERS Safety Report 4589630-4 (Version None)
Quarter: 2005Q1

REPORT INFORMATION
  Report Type: 
  Country: None (occurrence: None)
  Receive Date: 20050217
  Receipt Date: 20050207
  Transmission Date: 20050727
  Serious: Yes (Life-Threatening, Hospitalization, Disabling, Other)
  Sender: FDA-Public Use
  Company Number: 2005-01-0411

PATIENT
  Age: 41 Year
  Sex: Male

DRUGS (2)
  1. PEG-INTERFERON ALFA-2B INJECTABLE POWDER [Suspect]
     Indication: HEPATITIS C
     Dosage: 120 MCG/0.5ML SUBCUTANEOUS
     Route: 058
     Dates: start: 20040915
  2. RIBAVIRIN [Suspect]
     Indication: HEPATITIS C
     Dosage: 1000 MG ORAL
     Route: 048
     Dates: start: 20040915

REACTIONS (6)
  - BLADDER DISORDER [None]
  - EXTRADURAL ABSCESS [None]
  - PARAPLEGIA [None]
  - SPINAL CORD COMPRESSION [None]
  - STAPHYLOCOCCAL ABSCESS [None]
  - STAPHYLOCOCCAL BACTERAEMIA [None]
